FAERS Safety Report 18459850 (Version 1)
Quarter: 2020Q4

REPORT INFORMATION
  Report Type: Report from Study
  Country: US (occurrence: US)
  Receive Date: 20201103
  Receipt Date: 20201103
  Transmission Date: 20210114
  Serious: Yes (Hospitalization)
  Sender: FDA-Public Use
  Company Number: US-SEATTLE GENETICS-2020SGN04835

PATIENT
  Sex: Female

DRUGS (1)
  1. TUCATINIB [Suspect]
     Active Substance: TUCATINIB
     Indication: BONE CANCER

REACTIONS (2)
  - Hospitalisation [Unknown]
  - Off label use [Unknown]
